FAERS Safety Report 4549176-6 (Version None)
Quarter: 2005Q1

REPORT INFORMATION
  Report Type: 
  Country: None (occurrence: None)
  Receive Date: 20050111
  Receipt Date: 20041101
  Transmission Date: 20050727
  Serious: Yes (Hospitalization)
  Sender: FDA-Public Use
  Company Number: PHBS2004NZ14512

PATIENT
  Age: 39 Year
  Sex: Female

DRUGS (4)
  1. HALOPERIDOL - SLOW RELEASE [Concomitant]
     Dosage: 150 MG, BIW
     Route: 065
  2. PROCYCLIDINE HYDROCHLORIDE 2MG TAB [Concomitant]
     Dosage: 5 MG, TID, PRN
     Route: 065
  3. CLOZARIL [Suspect]
     Indication: SCHIZOPHRENIA
     Dosage: 125 MG, BID
     Route: 048
     Dates: start: 20041201
  4. CLOZARIL [Suspect]
     Route: 048
     Dates: start: 20041018, end: 20041102

REACTIONS (15)
  - BLOOD GLUCOSE INCREASED [None]
  - C-REACTIVE PROTEIN INCREASED [None]
  - DIZZINESS [None]
  - EOSINOPHIL COUNT INCREASED [None]
  - HAEMATOCRIT DECREASED [None]
  - HAEMOGLOBIN DECREASED [None]
  - LYMPHOCYTE COUNT DECREASED [None]
  - MALAISE [None]
  - NEUTROPHIL COUNT INCREASED [None]
  - NEUTROPHILIA [None]
  - ORTHOSTATIC HYPOTENSION [None]
  - PALLOR [None]
  - PLATELET COUNT INCREASED [None]
  - PYREXIA [None]
  - WHITE BLOOD CELL COUNT INCREASED [None]
